FAERS Safety Report 4928945-4 (Version None)
Quarter: 2006Q1

REPORT INFORMATION
  Report Type: 
  Country: None (occurrence: None)
  Receive Date: 20060301
  Receipt Date: 20050728
  Transmission Date: 20060701
  Serious: Yes (Hospitalization)
  Sender: FDA-Public Use
  Company Number: US-GLAXOSMITHKLINE-A0568190A

PATIENT
  Sex: Male
  Weight: 60.9 kg

DRUGS (9)
  1. PAXIL [Suspect]
     Indication: DEPRESSION
     Route: 048
     Dates: start: 20021114, end: 20030801
  2. PAXIL CR [Suspect]
     Indication: ANXIETY
     Dosage: 12.5MG SEE DOSAGE TEXT
     Route: 048
     Dates: start: 20021114
  3. ZYPREXA [Concomitant]
     Dosage: 250MG TWICE PER DAY
  4. KLONOPIN [Concomitant]
     Dosage: 50MG PER DAY
  5. PRILOSEC [Concomitant]
  6. ANAFRANIL [Concomitant]
     Dosage: 50MG AT NIGHT
  7. ZOLOFT [Concomitant]
  8. CELEXA [Concomitant]
  9. IMIPRAMINE [Concomitant]

REACTIONS (11)
  - ASPIRATION [None]
  - CHILD ABUSE [None]
  - DRUG WITHDRAWAL SYNDROME [None]
  - DYSPHAGIA [None]
  - DYSPHONIA [None]
  - INTENTIONAL SELF-INJURY [None]
  - LARYNGEAL DISORDER [None]
  - LOSS OF CONSCIOUSNESS [None]
  - SUICIDAL IDEATION [None]
  - SUICIDE ATTEMPT [None]
  - VOCAL CORD PARALYSIS [None]
